FAERS Safety Report 8272946-8 (Version None)
Quarter: 2012Q2

REPORT INFORMATION
  Report Type: 
  Country: None (occurrence: None)
  Receive Date: 20120406
  Receipt Date: 20120406
  Transmission Date: 20120825
  Serious: Yes (Other)
  Sender: FDA-Public Use
  Company Number: None

PATIENT
  Sex: Male
  Weight: 92.3 kg

DRUGS (3)
  1. EZETIMIBE [Concomitant]
  2. ATORVASTATIN [Suspect]
     Indication: CORONARY ARTERY DISEASE
     Dosage: 40MG ATORVASTATIN DAILY ORAL
     Route: 048
  3. SIMVASTATIN [Suspect]
     Dosage: 10MG SIMVASTATION DAILY ORAL
     Route: 048

REACTIONS (9)
  - DEPRESSION [None]
  - MALAISE [None]
  - THINKING ABNORMAL [None]
  - SELF ESTEEM DECREASED [None]
  - FEELING ABNORMAL [None]
  - FATIGUE [None]
  - AMNESIA [None]
  - MUSCLE DISORDER [None]
  - MENTAL DISORDER [None]
